FAERS Safety Report 25348715 (Version 2)
Quarter: 2025Q2

REPORT INFORMATION
  Report Type: Report from Study
  Country: CA (occurrence: CA)
  Receive Date: 20250522
  Receipt Date: 20250609
  Transmission Date: 20250716
  Serious: Yes (Other)
  Sender: TAKEDA
  Company Number: CA-TAKEDA-2022TUS087030

PATIENT
  Sex: Female

DRUGS (6)
  1. VEDOLIZUMAB [Suspect]
     Active Substance: VEDOLIZUMAB
     Indication: Colitis ulcerative
  2. VEDOLIZUMAB [Suspect]
     Active Substance: VEDOLIZUMAB
  3. VEDOLIZUMAB [Suspect]
     Active Substance: VEDOLIZUMAB
     Indication: Colitis ulcerative
     Dosage: 108 MILLIGRAM, Q2WEEKS
     Dates: start: 20230120, end: 20250509
  4. PENTASA [Concomitant]
     Active Substance: MESALAMINE
  5. IMURAN [Concomitant]
     Active Substance: AZATHIOPRINE
  6. MESALAMINE [Concomitant]
     Active Substance: MESALAMINE

REACTIONS (4)
  - Colitis ulcerative [Unknown]
  - Stomatitis [Unknown]
  - Tongue discomfort [Not Recovered/Not Resolved]
  - Drug ineffective [Not Recovered/Not Resolved]
